FAERS Safety Report 13158108 (Version 1)
Quarter: 2017Q1

REPORT INFORMATION
  Report Type: Spontaneous
  Country: US (occurrence: US)
  Receive Date: 20170124
  Receipt Date: 20170124
  Transmission Date: 20170428
  Serious: Yes (Other)
  Sender: FDA-Public Use
  Company Number: None

PATIENT
  Age: 59 Year
  Sex: Female
  Weight: 76.95 kg

DRUGS (9)
  1. PROBIOTIC [Concomitant]
     Active Substance: PROBIOTICS NOS
  2. ALBUTEROL. [Concomitant]
     Active Substance: ALBUTEROL
  3. ALLEGRA [Concomitant]
     Active Substance: FEXOFENADINE HYDROCHLORIDE
  4. VITAMIN C [Concomitant]
     Active Substance: ASCORBIC ACID
  5. VITAMIN D [Concomitant]
     Active Substance: CHOLECALCIFEROL
  6. SYNTHROID [Concomitant]
     Active Substance: LEVOTHYROXINE SODIUM
  7. MULTIVITAMIN [Concomitant]
     Active Substance: VITAMINS
  8. INVOKANA [Suspect]
     Active Substance: CANAGLIFLOZIN
     Indication: DIABETES MELLITUS
     Route: 048
  9. VITAMIN B COMPLEX [Concomitant]
     Active Substance: CYANOCOBALAMIN\DEXPANTHENOL\NIACINAMIDE\PYRIDOXINE HYDROCHLORIDE\RIBOFLAVIN 5^-PHOSPHATE SODIUM\THIAMINE HYDROCHLORIDE\VITAMIN B COMPLEX

REACTIONS (5)
  - Hepatic steatosis [None]
  - Abdominal pain [None]
  - Anger [None]
  - Gallbladder non-functioning [None]
  - Liver injury [None]

NARRATIVE: CASE EVENT DATE: 20161122
